FAERS Safety Report 7247680-3 (Version None)
Quarter: 2011Q1

REPORT INFORMATION
  Report Type: 
  Country: None (occurrence: None)
  Receive Date: 20110127
  Receipt Date: 20110119
  Transmission Date: 20110831
  Serious: Yes (Death)
  Sender: FDA-Public Use
  Company Number: LB-CELGENEUS-093-C5013-11010324

PATIENT

DRUGS (3)
  1. DEXAMETHASONE [Concomitant]
     Route: 065
  2. VELCADE [Concomitant]
     Route: 065
  3. CC-5013 [Suspect]
     Route: 048

REACTIONS (1)
  - CARDIAC ARREST [None]
